FAERS Safety Report 8475153-9 (Version None)
Quarter: 2012Q2

REPORT INFORMATION
  Report Type: 
  Country: None (occurrence: None)
  Receive Date: 20120628
  Receipt Date: 20120622
  Transmission Date: 20120825
  Serious: Yes (Other)
  Sender: FDA-Public Use
  Company Number: VE-PFIZER INC-2012128137

PATIENT
  Age: 55 Year
  Sex: Female

DRUGS (1)
  1. LIPITOR [Suspect]
     Dosage: UNK
     Route: 048
     Dates: end: 20120501

REACTIONS (1)
  - BILIARY POLYP [None]
